FAERS Safety Report 14345143 (Version 1)
Quarter: 2018Q1

REPORT INFORMATION
  Report Type: Spontaneous
  Country: US (occurrence: US)
  Receive Date: 20180103
  Receipt Date: 20180103
  Transmission Date: 20180509
  Serious: Yes (Hospitalization)
  Sender: FDA-Public Use
  Company Number: US-INGENUS PHARMACEUTICALS NJ, LLC-ING201712-000747

PATIENT
  Age: 54 Year
  Sex: Female

DRUGS (2)
  1. CARISOPRODOL AND ASPIRIN [Suspect]
     Active Substance: ASPIRIN\CARISOPRODOL
     Indication: HEADACHE
     Dosage: 5 TO 10 PACKETS
  2. CAFFEINE. [Suspect]
     Active Substance: CAFFEINE
     Indication: HEADACHE
     Dosage: 5 TO 10 PACKETS

REACTIONS (13)
  - Balance disorder [Unknown]
  - Toxicity to various agents [Recovered/Resolved]
  - Confusional state [Unknown]
  - Brain oedema [Recovering/Resolving]
  - Metabolic encephalopathy [Unknown]
  - Mental status changes [Unknown]
  - Dizziness [Unknown]
  - Somnolence [Unknown]
  - Headache [Unknown]
  - Lethargy [Unknown]
  - Product use in unapproved indication [Unknown]
  - Metabolic acidosis [Unknown]
  - Respiratory alkalosis [Unknown]
